FAERS Safety Report 5965901-1 (Version None)
Quarter: 2008Q4

REPORT INFORMATION
  Report Type: 
  Country: None (occurrence: None)
  Receive Date: 20081121
  Receipt Date: 20081121
  Transmission Date: 20090506
  Serious: No
  Sender: FDA-Public Use
  Company Number: None

PATIENT
  Age: 70 Year
  Sex: Female

DRUGS (1)
  1. ALISKIREN [Suspect]
     Dosage: 300 MG EVERY DAY PO
     Route: 048
     Dates: start: 20080909, end: 20081117

REACTIONS (1)
  - HEADACHE [None]
